FAERS Safety Report 9926733 (Version 1)
Quarter: 2014Q1

REPORT INFORMATION
  Report Type: Spontaneous
  Country: US (occurrence: US)
  Receive Date: 20140226
  Receipt Date: 20140226
  Transmission Date: 20141002
  Serious: No
  Sender: FDA-Public Use
  Company Number: US-AMGEN-USASP2013077720

PATIENT
  Age: 58 Year
  Sex: Male
  Weight: 102.49 kg

DRUGS (7)
  1. ENBREL [Suspect]
     Indication: PRODUCT USED FOR UNKNOWN INDICATION
     Dosage: 50 MG, QWK
     Route: 058
  2. OXYCONTIN [Concomitant]
     Dosage: 10 MG, UNK
  3. MEDROL                             /00049601/ [Concomitant]
     Dosage: 4 MG, UNK
  4. NORCO [Concomitant]
     Dosage: 10/325 MG, UNK
  5. FOLIC ACID [Concomitant]
     Dosage: 20 MG, UNK
  6. LISINOPRIL [Concomitant]
     Dosage: 5 MG, UNK
  7. METOPROLOL [Concomitant]
     Dosage: 200 MG, UNK

REACTIONS (2)
  - Injection site erythema [Unknown]
  - Injection site swelling [Unknown]
